FAERS Safety Report 11144993 (Version 1)
Quarter: 2015Q2

REPORT INFORMATION
  Report Type: Spontaneous
  Country: US (occurrence: None)
  Receive Date: 20150527
  Receipt Date: 20150527
  Transmission Date: 20150821
  Serious: No
  Sender: FDA-Public Use
  Company Number: None

PATIENT
  Sex: Female

DRUGS (16)
  1. NORTRIPTYLIN CAP [Concomitant]
  2. LIPITOR [Concomitant]
     Active Substance: ATORVASTATIN CALCIUM
  3. CARVEDILOL. [Concomitant]
     Active Substance: CARVEDILOL
  4. TOPIRAMATE. [Concomitant]
     Active Substance: TOPIRAMATE
  5. LYRICA [Concomitant]
     Active Substance: PREGABALIN
  6. ADVAIR DISKU AER [Concomitant]
  7. LISINOPRIL. [Concomitant]
     Active Substance: LISINOPRIL
  8. WELLBUTRIN [Concomitant]
     Active Substance: BUPROPION HYDROCHLORIDE
  9. METFORMIN [Concomitant]
     Active Substance: METFORMIN HYDROCHLORIDE
  10. SUMATRIPTAN. [Concomitant]
     Active Substance: SUMATRIPTAN
  11. SINGULAIR [Concomitant]
     Active Substance: MONTELUKAST SODIUM
  12. BOTOX [Suspect]
     Active Substance: ONABOTULINUMTOXINA
     Indication: MIGRAINE
     Dosage: INJECT BY PHYS 3 MONTHS
     Dates: start: 201412, end: 201503
  13. REQUIP [Concomitant]
     Active Substance: ROPINIROLE HYDROCHLORIDE
  14. XANAX [Concomitant]
     Active Substance: ALPRAZOLAM
  15. DALIRESP [Concomitant]
     Active Substance: ROFLUMILAST
  16. CYMBALTA [Concomitant]
     Active Substance: DULOXETINE HYDROCHLORIDE

REACTIONS (2)
  - Migraine [None]
  - Drug ineffective [None]
